FAERS Safety Report 15555576 (Version 1)
Quarter: 2018Q4

REPORT INFORMATION
  Report Type: Spontaneous
  Country: US (occurrence: US)
  Receive Date: 20181026
  Receipt Date: 20181026
  Transmission Date: 20190205
  Serious: No
  Sender: FDA-Public Use
  Company Number: US-BAYER-2018-193655

PATIENT
  Sex: Female

DRUGS (1)
  1. ALEVE BACK AND MUSCLE PAIN [Suspect]
     Active Substance: NAPROXEN SODIUM
     Indication: PAIN
     Dosage: 1 SOMETIMES 2 TABLETS, QD
     Route: 048
     Dates: start: 2018

REACTIONS (2)
  - Product use issue [Unknown]
  - Renal disorder [Unknown]

NARRATIVE: CASE EVENT DATE: 2018
